FAERS Safety Report 10385938 (Version 1)
Quarter: 2014Q3

REPORT INFORMATION
  Report Type: Spontaneous
  Country: JP (occurrence: None)
  Receive Date: 20140812
  Receipt Date: 20140812
  Transmission Date: 20150326
  Serious: Yes (Other)
  Sender: FDA-Public Use
  Company Number: FK201403222

PATIENT
  Age: 70 Year
  Sex: Female

DRUGS (4)
  1. METHOTREXATE (MANUFACTURER UNKNOWN) (METHOTREXATE) (METHOTREXATE) [Suspect]
     Active Substance: METHOTREXATE
     Indication: RHEUMATOID ARTHRITIS
     Dosage: 8 MG 2 MG INCREASE EVERY 2 WEEKS
     Dates: start: 201205
  2. IMIPENEM/CILASTATINE [Concomitant]
  3. PREDNISOLONE (PREDNISOLONE) (PREDNISOLONE) [Suspect]
     Active Substance: PREDNISOLONE
     Dates: start: 201205
  4. GARENOXACIN MESILATE [Concomitant]
     Active Substance: GARENOXACIN MESYLATE

REACTIONS (5)
  - Arthralgia [None]
  - Bronchiectasis [None]
  - Joint swelling [None]
  - Mycobacterial infection [None]
  - Polymyalgia rheumatica [None]
